FAERS Safety Report 10557576 (Version 1)
Quarter: 2014Q4

REPORT INFORMATION
  Report Type: Spontaneous
  Country: US (occurrence: None)
  Receive Date: 20141030
  Receipt Date: 20141030
  Transmission Date: 20150529
  Serious: Yes (Hospitalization)
  Sender: FDA-Public Use
  Company Number: None

PATIENT
  Age: 54 Year
  Sex: Female
  Weight: 65.8 kg

DRUGS (16)
  1. FERROUS GLUCONATE [Concomitant]
     Active Substance: FERROUS GLUCONATE
  2. LISINOPRIL. [Concomitant]
     Active Substance: LISINOPRIL
  3. ATORVASTATIN [Concomitant]
     Active Substance: ATORVASTATIN
  4. ESOMEPRAZOLE [Concomitant]
     Active Substance: ESOMEPRAZOLE
  5. FENOFIBRATE. [Concomitant]
     Active Substance: FENOFIBRATE
  6. METOPROLOL [Concomitant]
     Active Substance: METOPROLOL
  7. COUMADIN [Suspect]
     Active Substance: WARFARIN SODIUM
  8. OXYCODONE-ACETAMINOPHEN [Concomitant]
     Active Substance: ACETAMINOPHEN\OXYCODONE HYDROCHLORIDE
  9. SUCRALFATE. [Concomitant]
     Active Substance: SUCRALFATE
  10. VARENICLINE [Concomitant]
     Active Substance: VARENICLINE
  11. CILOSTAZOL. [Concomitant]
     Active Substance: CILOSTAZOL
  12. FUROSEMIDE. [Concomitant]
     Active Substance: FUROSEMIDE
  13. ASPIRIN. [Concomitant]
     Active Substance: ASPIRIN
  14. FLUOXETINE [Concomitant]
     Active Substance: FLUOXETINE\FLUOXETINE HYDROCHLORIDE
  15. ERGOCALCIFEROL. [Concomitant]
     Active Substance: ERGOCALCIFEROL
  16. WARFARIN [Concomitant]
     Active Substance: WARFARIN

REACTIONS (9)
  - Cerebrovascular accident [None]
  - Nausea [None]
  - Vomiting [None]
  - Sinusitis [None]
  - Malaise [None]
  - International normalised ratio increased [None]
  - Decreased appetite [None]
  - International normalised ratio decreased [None]
  - Gastrointestinal haemorrhage [None]

NARRATIVE: CASE EVENT DATE: 20141002
